FAERS Safety Report 6023856-8 (Version None)
Quarter: 2008Q4

REPORT INFORMATION
  Report Type: 
  Country: None (occurrence: None)
  Receive Date: 20081230
  Receipt Date: 20081218
  Transmission Date: 20090506
  Serious: Yes (Other)
  Sender: FDA-Public Use
  Company Number: GB-PFIZER INC-2008156752

PATIENT

DRUGS (1)
  1. CABASER [Suspect]
     Dosage: UNK
     Dates: start: 19980101, end: 20070101

REACTIONS (2)
  - HYPERSEXUALITY [None]
  - OBSESSIVE-COMPULSIVE DISORDER [None]
